FAERS Safety Report 15143768 (Version 1)
Quarter: 2018Q3

REPORT INFORMATION
  Report Type: Spontaneous
  Country: US (occurrence: US)
  Receive Date: 20180713
  Receipt Date: 20180713
  Transmission Date: 20181010
  Serious: No
  Sender: FDA-Public Use
  Company Number: US-AMGEN-USASP2010007219

PATIENT
  Age: 63 Year
  Sex: Female
  Weight: 65.76 kg

DRUGS (6)
  1. PROCRIT [Suspect]
     Active Substance: ERYTHROPOIETIN
     Indication: PRODUCT USED FOR UNKNOWN INDICATION
     Dosage: 40000 IU, QWK
     Route: 058
     Dates: start: 201010
  2. RIBAVIRIN. [Concomitant]
     Active Substance: RIBAVIRIN
     Dosage: 1000 MG, QD
     Route: 048
     Dates: start: 20100813
  3. PEGASYS                            /01557901/ [Concomitant]
     Dosage: 180 MG, QWK
     Route: 058
     Dates: start: 20100813
  4. XANAX [Concomitant]
     Active Substance: ALPRAZOLAM
     Dosage: 0.5 MG, BID
     Route: 048
     Dates: start: 1990
  5. BONIVA [Concomitant]
     Active Substance: IBANDRONATE SODIUM
     Dosage: UNK UNK, QMO
     Route: 048
     Dates: start: 2008
  6. PARNATE                            /00071701/ [Concomitant]
     Dosage: 20 MG, BID
     Route: 048
     Dates: start: 1990

REACTIONS (1)
  - Rash generalised [Not Recovered/Not Resolved]

NARRATIVE: CASE EVENT DATE: 201011
